FAERS Safety Report 6656147-2 (Version None)
Quarter: 2010Q1

REPORT INFORMATION
  Report Type: 
  Country: None (occurrence: None)
  Receive Date: 20100326
  Receipt Date: 20100326
  Transmission Date: 20100710
  Serious: Yes (Other)
  Sender: FDA-Public Use
  Company Number: None

PATIENT
  Sex: Female
  Weight: 100.2449 kg

DRUGS (1)
  1. ACTONEL [Suspect]
     Indication: OSTEOPENIA
     Dosage: 1 PILL MONTHLY PO, ONE DOSE
     Route: 048
     Dates: start: 20090222, end: 20090222

REACTIONS (8)
  - ASTHENIA [None]
  - CHILLS [None]
  - DIZZINESS [None]
  - FATIGUE [None]
  - MALAISE [None]
  - NAUSEA [None]
  - PAIN [None]
  - PYREXIA [None]
